FAERS Safety Report 5797845-2 (Version None)
Quarter: 2008Q2

REPORT INFORMATION
  Report Type: 
  Country: None (occurrence: None)
  Receive Date: 20080601
  Receipt Date: 20080202
  Transmission Date: 20081010
  Serious: No
  Sender: FDA-Public Use
  Company Number: US200802000615

PATIENT
  Age: 68 Year
  Sex: Female

DRUGS (7)
  1. BYETTA [Suspect]
     Indication: TYPE 2 DIABETES MELLITUS
     Dosage: 5 UG, 2/D, SUBCUTANEOUS ; 10 UG, 2/D, SUBCUTANEOUS
     Route: 058
     Dates: start: 20060601, end: 20060701
  2. BYETTA [Suspect]
     Indication: TYPE 2 DIABETES MELLITUS
     Dosage: 5 UG, 2/D, SUBCUTANEOUS ; 10 UG, 2/D, SUBCUTANEOUS
     Route: 058
     Dates: start: 20060701
  3. EXENATIDE PEN, DISPOSABLE DEVICE (EXENATIDE PEN) PEN,DISPOSABLE [Concomitant]
  4. GLYBURIDE [Concomitant]
  5. LISINOPRIL (ESOMEPRAZOLE MAGNESIUM) [Concomitant]
  6. CYMBALTA [Concomitant]
  7. NEXIUM [Concomitant]

REACTIONS (4)
  - BLOOD CHOLESTEROL INCREASED [None]
  - NAUSEA [None]
  - RASH GENERALISED [None]
  - VOMITING [None]
